FAERS Safety Report 25645849 (Version 1)
Quarter: 2025Q3

REPORT INFORMATION
  Report Type: Spontaneous
  Country: US (occurrence: US)
  Receive Date: 20250805
  Receipt Date: 20250805
  Transmission Date: 20251020
  Serious: No
  Sender: BAUSCH AND LOMB
  Company Number: US-BAUSCHBL-2025BNL013359

PATIENT
  Sex: Male

DRUGS (2)
  1. MIEBO [Suspect]
     Active Substance: PERFLUOROHEXYLOCTANE
     Indication: Dry eye
     Dosage: 1 GTT, QD
     Route: 047
  2. MIEBO [Suspect]
     Active Substance: PERFLUOROHEXYLOCTANE
     Route: 047
     Dates: start: 20250729

REACTIONS (3)
  - Dizziness [Recovering/Resolving]
  - Sinusitis [Unknown]
  - Inappropriate schedule of product administration [Unknown]
